FAERS Safety Report 24468469 (Version 4)
Quarter: 2024Q4

REPORT INFORMATION
  Report Type: Spontaneous
  Country: US (occurrence: US)
  Receive Date: 20241018
  Receipt Date: 20241126
  Transmission Date: 20250115
  Serious: No
  Sender: PFIZER
  Company Number: US-PFIZER INC-202400275608

PATIENT
  Age: 33 Year
  Sex: Male
  Weight: 83.3 kg

DRUGS (1)
  1. ADCETRIS [Suspect]
     Active Substance: BRENTUXIMAB VEDOTIN
     Indication: Angioimmunoblastic T-cell lymphoma
     Dosage: 140 MG IV INFUSED EVERY 3 WEEKS
     Route: 042
     Dates: start: 20240930

REACTIONS (1)
  - Weight increased [Unknown]
